FAERS Safety Report 13289327 (Version 1)
Quarter: 2017Q1

REPORT INFORMATION
  Report Type: Spontaneous
  Country: US (occurrence: US)
  Receive Date: 20170302
  Receipt Date: 20170302
  Transmission Date: 20170428
  Serious: Yes (Other)
  Sender: FDA-Public Use
  Company Number: US-TEVA-745631ACC

PATIENT
  Age: 16 Year
  Sex: Female
  Weight: 45.4 kg

DRUGS (4)
  1. VITAMINS [Concomitant]
     Active Substance: VITAMINS
  2. PLAN B ONE-STEP [Suspect]
     Active Substance: LEVONORGESTREL
     Indication: POST COITAL CONTRACEPTION
  3. MELATONIN [Concomitant]
     Active Substance: MELATONIN
     Indication: SLEEP DISORDER
  4. VICKS NYQUIL [Concomitant]
     Active Substance: ACETAMINOPHEN\DEXTROMETHORPHAN HYDROBROMIDE\DOXYLAMINE SUCCINATE
     Indication: SLEEP DISORDER

REACTIONS (18)
  - Exposure during pregnancy [Unknown]
  - Breast tenderness [Unknown]
  - Breast swelling [Not Recovered/Not Resolved]
  - Weight increased [Unknown]
  - Pregnancy after post coital contraception [Unknown]
  - Dyspnoea [Recovered/Resolved]
  - Vaginal discharge [Unknown]
  - Fatigue [Recovered/Resolved]
  - Dysmenorrhoea [Unknown]
  - Hypomenorrhoea [Recovered/Resolved]
  - Menstruation delayed [Not Recovered/Not Resolved]
  - Mood swings [Not Recovered/Not Resolved]
  - Abdominal distension [Not Recovered/Not Resolved]
  - Breast pain [Unknown]
  - Depressed mood [Not Recovered/Not Resolved]
  - Stress [Not Recovered/Not Resolved]
  - Vaginal haemorrhage [Recovered/Resolved]
  - Prescription drug used without a prescription [Unknown]

NARRATIVE: CASE EVENT DATE: 20170127
